FAERS Safety Report 5780989-9 (Version None)
Quarter: 2008Q2

REPORT INFORMATION
  Report Type: 
  Country: None (occurrence: None)
  Receive Date: 20080620
  Receipt Date: 20080610
  Transmission Date: 20081010
  Serious: Yes (Death)
  Sender: FDA-Public Use
  Company Number: JP-PFIZER INC-2008049230

PATIENT
  Sex: Female

DRUGS (4)
  1. CLINDAMYCIN PHOSPHATE [Suspect]
     Route: 042
     Dates: start: 20080514, end: 20080514
  2. BLINDED CLINDAMYCIN [Suspect]
     Indication: SEPSIS
     Route: 042
     Dates: start: 20080514, end: 20080514
  3. BENZYLPENICILLIN POTASSIUM [Suspect]
     Route: 042
     Dates: start: 20080514, end: 20080514
  4. PREDNISOLONE SODIUM SUCCINATE INJ [Suspect]
     Dosage: DAILY DOSE:10MG
     Route: 042
     Dates: start: 20080514, end: 20080514

REACTIONS (1)
  - SEPTIC SHOCK [None]
